FAERS Safety Report 6028090-3 (Version None)
Quarter: 2009Q1

REPORT INFORMATION
  Report Type: 
  Country: None (occurrence: None)
  Receive Date: 20090106
  Receipt Date: 20080602
  Transmission Date: 20090719
  Serious: No
  Sender: FDA-Public Use
  Company Number: CA-BAYER-200815949NA

PATIENT
  Sex: Female

DRUGS (1)
  1. CIPRO XR [Suspect]
     Indication: DRUG USE FOR UNKNOWN INDICATION
     Route: 048

REACTIONS (1)
  - ABORTION SPONTANEOUS [None]
